FAERS Safety Report 5141802-6 (Version None)
Quarter: 2006Q4

REPORT INFORMATION
  Report Type: 
  Country: None (occurrence: None)
  Receive Date: 20061027
  Receipt Date: 20061017
  Transmission Date: 20070319
  Serious: Yes (Other)
  Sender: FDA-Public Use
  Company Number: 2006127730

PATIENT
  Age: 62 Year
  Sex: Male

DRUGS (1)
  1. TOLTERODINE TARTRATE [Suspect]
     Indication: HYPERTONIC BLADDER
     Dosage: (4 MG), ORAL
     Route: 048
     Dates: start: 20040924, end: 20041001

REACTIONS (2)
  - AFFECTIVE DISORDER [None]
  - UNEVALUABLE EVENT [None]
